FAERS Safety Report 5681602-1 (Version None)
Quarter: 2008Q1

REPORT INFORMATION
  Report Type: 
  Country: None (occurrence: None)
  Receive Date: 20080326
  Receipt Date: 20070223
  Transmission Date: 20080703
  Serious: No
  Sender: FDA-Public Use
  Company Number: US-BAYER-US-2007-006662

PATIENT
  Age: 30 Year
  Sex: Female

DRUGS (2)
  1. MIRENA [Suspect]
     Indication: CONTRACEPTION
     Route: 015
     Dates: start: 20070130, end: 20070205
  2. DARVOCET-N [Concomitant]
     Dosage: UNIT DOSE: 100 MG
     Route: 048

REACTIONS (4)
  - ABDOMINAL PAIN [None]
  - DISCOMFORT [None]
  - PAIN [None]
  - VAGINAL HAEMORRHAGE [None]
